FAERS Safety Report 14473954 (Version 14)
Quarter: 2020Q3

REPORT INFORMATION
  Report Type: Report from Study
  Country: CA (occurrence: CA)
  Receive Date: 20180201
  Receipt Date: 20200824
  Transmission Date: 20201102
  Serious: Yes (Hospitalization, Other)
  Sender: FDA-Public Use
  Company Number: PHHY2017CA151526

PATIENT
  Age: 66 Year
  Sex: Male
  Weight: 89.2 kg

DRUGS (21)
  1. SPIRONOLACTONE. [Concomitant]
     Active Substance: SPIRONOLACTONE
     Indication: CARDIAC FAILURE
     Dosage: 12.5 MG, UNKNOWN
     Route: 048
     Dates: start: 20180427
  2. FUROSEMIDE. [Concomitant]
     Active Substance: FUROSEMIDE
     Indication: CARDIAC FAILURE
     Dosage: 20 MG, UNKNOWN
     Route: 048
     Dates: start: 20180531
  3. RISPERDAL [Concomitant]
     Active Substance: RISPERIDONE
     Indication: SCHIZOPHRENIA
     Dosage: 75 MG, UNKNOWN (14 DAYS)
     Route: 065
     Dates: start: 20191212
  4. FRAGMIN [Concomitant]
     Active Substance: DALTEPARIN SODIUM
     Indication: BEDRIDDEN
     Dosage: 18000 OT
     Route: 065
     Dates: start: 20200512
  5. VICTOZA [Concomitant]
     Active Substance: LIRAGLUTIDE
     Dosage: 1.2 MG
     Route: 065
     Dates: start: 20190823
  6. ACETAMINOPHEN. [Concomitant]
     Active Substance: ACETAMINOPHEN
     Indication: PAIN
     Dosage: 650 MG, UNKNOWN
     Route: 065
     Dates: start: 20190531
  7. ATORVASTATIN [Concomitant]
     Active Substance: ATORVASTATIN
     Indication: CARDIAC FAILURE
     Dosage: 40 MG, UNKNOWN
     Route: 048
  8. FUROSEMIDE. [Concomitant]
     Active Substance: FUROSEMIDE
     Indication: DYSPNOEA
     Dosage: 40 MG
     Route: 065
     Dates: start: 20200331, end: 20200401
  9. ENTRESTO [Suspect]
     Active Substance: SACUBITRIL\VALSARTAN
     Indication: CARDIAC FAILURE
     Dosage: 2 DF, UNKNOWN ( (24 MG SACUBITRIL AND 26 MG VALSARTAN)
     Route: 048
     Dates: start: 20170604, end: 20170721
  10. ENTRESTO [Suspect]
     Active Substance: SACUBITRIL\VALSARTAN
     Dosage: 1 DF (49MG /51MG)
     Route: 048
     Dates: start: 20181025
  11. ENTRESTO [Suspect]
     Active Substance: SACUBITRIL\VALSARTAN
     Dosage: 1 DF (24MG /26MG)
     Route: 048
     Dates: start: 20181025
  12. BISOPROLOL [Concomitant]
     Active Substance: BISOPROLOL
     Indication: CARDIAC FAILURE
     Dosage: 2.5 MG, UNKNOWN
     Route: 048
  13. PROCYCLIDINE [Concomitant]
     Active Substance: PROCYCLIDINE
     Indication: DYSKINESIA
     Dosage: 5 MG, BID
     Route: 065
     Dates: start: 201709
  14. ENTRESTO [Suspect]
     Active Substance: SACUBITRIL\VALSARTAN
     Dosage: 2 DF (SACUBITRIL 24 MG/ VALSARTAN 26 MG)
     Route: 048
     Dates: start: 20180524, end: 20181025
  15. BENZOTROPINE [Concomitant]
     Active Substance: BENZTROPINE
     Indication: SCHIZOPHRENIA
     Dosage: 0.5 MG, UNKNOWN
     Route: 065
     Dates: start: 20200116
  16. MAXERAN [Concomitant]
     Active Substance: METOCLOPRAMIDE HYDROCHLORIDE
     Indication: NAUSEA
     Dosage: 10 MG
     Route: 065
     Dates: start: 20200512
  17. ENTRESTO [Suspect]
     Active Substance: SACUBITRIL\VALSARTAN
     Dosage: 2 DF (SACUBITRIL 49 MG AND VALSARTAN 51 MG)
     Route: 048
     Dates: start: 20170721, end: 20180102
  18. NITRO [Concomitant]
     Active Substance: NITROGLYCERIN
     Indication: CHEST PAIN
     Dosage: 0.4 MG
     Route: 065
     Dates: start: 20200331, end: 20200402
  19. ENTRESTO [Suspect]
     Active Substance: SACUBITRIL\VALSARTAN
     Dosage: 2 DF  (SACUBITRIL 49 MG AND VALSARTAN 51 MG)
     Route: 048
     Dates: start: 20180116, end: 20180524
  20. VICTOZA [Concomitant]
     Active Substance: LIRAGLUTIDE
     Indication: DIABETES MELLITUS
     Dosage: 0.6 MG, UNKNOWN
     Route: 065
     Dates: start: 20190819, end: 20190822
  21. TRANDOLAPRIL. [Concomitant]
     Active Substance: TRANDOLAPRIL
     Indication: PRODUCT USED FOR UNKNOWN INDICATION
     Dosage: 1 MG, UNKNOWN
     Route: 065
     Dates: start: 20170601

REACTIONS (17)
  - Anxiety [Recovered/Resolved]
  - Confusional state [Unknown]
  - Blood urea increased [Not Recovered/Not Resolved]
  - Dehydration [Recovered/Resolved]
  - Angina pectoris [Recovered/Resolved]
  - Coronavirus test positive [Recovered/Resolved]
  - Cough [Unknown]
  - Acute kidney injury [Recovered/Resolved]
  - Amnesia [Recovered/Resolved]
  - Cerebellar atrophy [Recovered/Resolved]
  - Dyspnoea [Unknown]
  - Pneumonia [Recovered/Resolved]
  - Atrial fibrillation [Recovered/Resolved]
  - Blood creatinine increased [Recovered/Resolved]
  - Glycosylated haemoglobin increased [Unknown]
  - Gastroenteritis [Recovered/Resolved]
  - Blood creatinine increased [Unknown]

NARRATIVE: CASE EVENT DATE: 20170919
